FAERS Safety Report 9458428 (Version 1)
Quarter: 2013Q3

REPORT INFORMATION
  Report Type: Spontaneous
  Country: FR (occurrence: FR)
  Receive Date: 20130814
  Receipt Date: 20130814
  Transmission Date: 20140515
  Serious: Yes (Other)
  Sender: FDA-Public Use
  Company Number: PHHY2013FR079716

PATIENT
  Age: 14 Year
  Sex: Female

DRUGS (1)
  1. OMNITROPE [Suspect]
     Indication: GROWTH HORMONE DEFICIENCY
     Dosage: 1 DF, QD
     Route: 058

REACTIONS (1)
  - Device damage [Unknown]
